FAERS Safety Report 17043762 (Version 1)
Quarter: 2019Q4

REPORT INFORMATION
  Report Type: Spontaneous
  Country: JP (occurrence: JP)
  Receive Date: 20191118
  Receipt Date: 20191118
  Transmission Date: 20200122
  Serious: Yes (Hospitalization, Other)
  Sender: FDA-Public Use
  Company Number: JP-PFIZER INC-2019341531

PATIENT
  Age: 71 Year
  Sex: Female
  Weight: 54 kg

DRUGS (5)
  1. NEXIUM [Concomitant]
     Active Substance: ESOMEPRAZOLE MAGNESIUM
     Indication: GASTRIC ULCER
     Dosage: 10 MG, 1X/DAY
     Route: 048
  2. LORBRENA [Suspect]
     Active Substance: LORLATINIB
     Indication: LUNG NEOPLASM MALIGNANT
     Dosage: 100 MG, 1X/DAY
     Route: 048
     Dates: start: 20190614, end: 20190802
  3. TRAMCET [Concomitant]
     Active Substance: ACETAMINOPHEN\TRAMADOL
     Indication: BACK PAIN
     Dosage: UNK UNK, 4X/DAY
     Route: 048
  4. CRESTOR [Concomitant]
     Active Substance: ROSUVASTATIN CALCIUM
     Indication: DYSLIPIDAEMIA
     Dosage: 10 (UNIT UNKNOWN), 1X/DAY
     Route: 048
  5. ZOLPIDEM [Concomitant]
     Active Substance: ZOLPIDEM TARTRATE
     Indication: INSOMNIA
     Dosage: 5 MG, 1X/DAY
     Route: 048

REACTIONS (5)
  - Dyspnoea [Unknown]
  - Dysphoria [Unknown]
  - Stress cardiomyopathy [Recovered/Resolved]
  - Diarrhoea [Recovered/Resolved]
  - Cardiac failure [Unknown]

NARRATIVE: CASE EVENT DATE: 20190804
